FAERS Safety Report 8430614-3 (Version None)
Quarter: 2012Q2

REPORT INFORMATION
  Report Type: 
  Country: None (occurrence: None)
  Receive Date: 20120612
  Receipt Date: 20120530
  Transmission Date: 20120825
  Serious: No
  Sender: FDA-Public Use
  Company Number: US-ASTRAZENECA-2012SE36037

PATIENT
  Sex: Female

DRUGS (2)
  1. ZOMIG [Suspect]
  2. IMITREX [Concomitant]

REACTIONS (1)
  - FEELING ABNORMAL [None]
